FAERS Safety Report 9698015 (Version 2)
Quarter: 2013Q4

REPORT INFORMATION
  Report Type: Spontaneous
  Country: GB (occurrence: None)
  Receive Date: 20131118
  Receipt Date: 20131125
  Transmission Date: 20140711
  Serious: Yes (Hospitalization)
  Sender: FDA-Public Use
  Company Number: AG-2013-015927

PATIENT
  Age: 71 Year
  Sex: Male
  Weight: 70.7 kg

DRUGS (8)
  1. CHLORAMBUCIL [Suspect]
     Indication: CHRONIC LYMPHOCYTIC LEUKAEMIA
     Route: 048
     Dates: start: 20131024
  2. OFATUMUMAB [Suspect]
     Indication: CHRONIC LYMPHOCYTIC LEUKAEMIA
     Route: 042
  3. PARACETAMOL (PARACETAMOL) (UNKNOWN) [Concomitant]
  4. CHLORPHENIRAMINE (CHLORPHENAMINE) (UNKNOWN) [Concomitant]
  5. PREDNISOLONE (PREDINSOLONE) (UNKNOWN) [Concomitant]
  6. ALLOPURINOL (ALLOPURINOL) (UNKNOWN) [Concomitant]
  7. ACYCLOVIR (ACICLOVIR) (UNKNOWN) [Concomitant]
  8. METOCLOPRAMIDE (METOCLOPRAMIDE) [Concomitant]

REACTIONS (1)
  - Skin infection [None]
